FAERS Safety Report 9404889 (Version 1)
Quarter: 2013Q3

REPORT INFORMATION
  Report Type: Spontaneous
  Country: US (occurrence: US)
  Receive Date: 20130717
  Receipt Date: 20130717
  Transmission Date: 20140515
  Serious: No
  Sender: FDA-Public Use
  Company Number: US-BRISTOL-MYERS SQUIBB COMPANY-18901363

PATIENT
  Age: 63 Year
  Sex: Male
  Weight: 102.94 kg

DRUGS (6)
  1. YERVOY [Suspect]
     Indication: MALIGNANT MELANOMA
  2. KEPPRA [Concomitant]
     Indication: CONVULSION
  3. BENZONATATE [Concomitant]
     Indication: COUGH
  4. AMBIEN [Concomitant]
     Dosage: EVERY HOUR OF SLEEP (AT BEDTIME)
  5. MULTIVITAMIN [Concomitant]
  6. OMEGA-3 [Concomitant]

REACTIONS (2)
  - Rash pruritic [Recovering/Resolving]
  - Dry skin [Not Recovered/Not Resolved]
